FAERS Safety Report 5351684-5 (Version None)
Quarter: 2007Q2

REPORT INFORMATION
  Report Type: 
  Country: None (occurrence: None)
  Receive Date: 20070518
  Receipt Date: 20070228
  Transmission Date: 20071010
  Serious: No
  Sender: FDA-Public Use
  Company Number: TPA2007A00226

PATIENT
  Age: 72 Year
  Sex: Female
  Weight: 81.6475 kg

DRUGS (5)
  1. ROZEREM [Suspect]
     Indication: INSOMNIA
     Dosage: 8 MG, HS, PER ORAL
     Route: 048
     Dates: start: 20070124, end: 20070126
  2. LIPITOR [Concomitant]
  3. TOPROL-XL [Concomitant]
  4. BABY ASPIRIN (ACETYLSALICYLIC ACID) (TABLETS) [Concomitant]
  5. .... [Concomitant]

REACTIONS (1)
  - DRUG INEFFECTIVE [None]
